FAERS Safety Report 9133890 (Version 1)
Quarter: 2013Q1

REPORT INFORMATION
  Report Type: Spontaneous
  Country: US (occurrence: US)
  Receive Date: 20130119
  Receipt Date: 20130119
  Transmission Date: 20140127
  Serious: No
  Sender: FDA-Public Use
  Company Number: US-ALLERGAN-1201083US

PATIENT
  Age: 64 Year
  Sex: Female

DRUGS (8)
  1. BOTOX? [Suspect]
     Indication: MIGRAINE
     Dosage: 155 UNITS, SINGLE
     Route: 030
     Dates: start: 20111222, end: 20111222
  2. INDEROL [Concomitant]
     Indication: MIGRAINE
     Dosage: 30 MG, BID
     Route: 048
  3. AMITRIPTYLINE [Concomitant]
     Indication: MIGRAINE
     Dosage: 15 MG, QHS
     Route: 048
  4. ATIVAN [Concomitant]
     Indication: MIGRAINE
     Dosage: 0.75 MG, QHS
     Route: 048
  5. OXYCONTIN [Concomitant]
     Indication: BACK PAIN
     Dosage: 20 MG, Q12H
     Route: 048
  6. XANAFLEX [Concomitant]
     Indication: BACK PAIN
     Dosage: UNK
     Route: 048
  7. KADIAN ER [Concomitant]
     Indication: BACK PAIN
     Dosage: UNK
  8. IVIG [Suspect]
     Indication: IMMUNOGLOBULINS DECREASED

REACTIONS (3)
  - Musculoskeletal pain [Recovered/Resolved]
  - Back pain [Recovered/Resolved]
  - Neck pain [Recovered/Resolved]
